FAERS Safety Report 4314237-3 (Version None)
Quarter: 2004Q1

REPORT INFORMATION
  Report Type: 
  Country: None (occurrence: None)
  Receive Date: 20040309
  Receipt Date: 20040309
  Transmission Date: 20041129
  Serious: Yes (Disabling)
  Sender: FDA-Public Use
  Company Number: None

PATIENT
  Age: 39 Year
  Sex: Male
  Weight: 95.2554 kg

DRUGS (1)
  1. ZICAM COLD REMEDY PUMP FORM MATRIXX [Suspect]
     Dosage: 2 DAY NASAL
     Route: 045
     Dates: start: 20020810, end: 20020815

REACTIONS (4)
  - ANOSMIA [None]
  - BURNING SENSATION [None]
  - HYPOGEUSIA [None]
  - SINUS DISORDER [None]
